FAERS Safety Report 15895888 (Version 2)
Quarter: 2019Q1

REPORT INFORMATION
  Report Type: Report from Study
  Country: None (occurrence: US)
  Receive Date: 20190131
  Receipt Date: 20190319
  Transmission Date: 20190417
  Serious: Yes (Hospitalization, Other)
  Sender: FDA-Public Use
  Company Number: US-ABBVIE-19S-163-2643476-00

PATIENT
  Age: 41 Year
  Sex: Female

DRUGS (1)
  1. NORVIR [Suspect]
     Active Substance: RITONAVIR
     Indication: PRODUCT USED FOR UNKNOWN INDICATION
     Route: 048

REACTIONS (21)
  - Balance disorder [Unknown]
  - Pancytopenia [Unknown]
  - Hospitalisation [Unknown]
  - Malnutrition [Unknown]
  - Major depression [Unknown]
  - Diarrhoea [Unknown]
  - HIV infection [Unknown]
  - Neutropenia [Unknown]
  - Adult failure to thrive [Unknown]
  - Dysphagia [Unknown]
  - Abdominal pain [Unknown]
  - Muscular weakness [Unknown]
  - Hyponatraemia [Unknown]
  - Anaemia vitamin B12 deficiency [Unknown]
  - Blood osmolarity decreased [Unknown]
  - Urinary tract infection [Unknown]
  - Essential hypertension [Unknown]
  - Cachexia [Unknown]
  - Infection [Unknown]
  - Gastrostomy [Unknown]
  - Unevaluable event [Unknown]

NARRATIVE: CASE EVENT DATE: 20170311
